FAERS Safety Report 18045854 (Version 1)
Quarter: 2020Q3

REPORT INFORMATION
  Report Type: Report from Study
  Country: US (occurrence: US)
  Receive Date: 20200720
  Receipt Date: 20200720
  Transmission Date: 20201103
  Serious: Yes (Death)
  Sender: FDA-Public Use
  Company Number: US-MYLANLABS-2020M1065552

PATIENT
  Age: 52 Year

DRUGS (14)
  1. METHOTREXATE. [Suspect]
     Active Substance: METHOTREXATE
     Dosage: 12 MG, ON DAY 2 DURING THE FIRST FOUR COURSES OF INTENSIVE CHEMOTHERAPY...
     Route: 037
  2. CYCLOPHOSPHAMIDE. [Suspect]
     Active Substance: CYCLOPHOSPHAMIDE
     Indication: NEOPLASM MALIGNANT
     Dosage: 300 MG/M2 BID, OVER 3 H EVERY 12 H FOR SIX DOSES...
     Route: 042
  3. VINCRISTINE [Suspect]
     Active Substance: VINCRISTINE
     Indication: NEOPLASM MALIGNANT
     Dosage: 2 MG, ON DAYS 4 AND 11 ON COURSES...
     Route: 042
  4. CYTARABINE. [Suspect]
     Active Substance: CYTARABINE
     Indication: NEOPLASM MALIGNANT
     Dosage: 3 G/M2 INTRAVENOUSLY OVER 2 H EVERY 12 H FOR FOUR..
     Route: 042
  5. OFATUMUMAB [Suspect]
     Active Substance: OFATUMUMAB
     Dosage: ON DAY 11 OF COURSE THREE AND...
     Route: 042
  6. LEUCOVORIN                         /00566701/ [Concomitant]
     Active Substance: LEUCOVORIN
     Indication: NEOPLASM MALIGNANT
     Dosage: 50 MG, STARTING 12H AFTER END OF...
     Route: 042
  7. MESNA. [Concomitant]
     Active Substance: MESNA
     Indication: NEOPLASM MALIGNANT
     Dosage: 600 MG/M2 QD; GIVEN AS A CONTINUOUS...
     Route: 042
  8. METHOTREXATE. [Suspect]
     Active Substance: METHOTREXATE
     Indication: NEOPLASM MALIGNANT
     Dosage: 200 MG/M2 Q2H; ON DAY 1 OF COURSES..
     Route: 042
  9. METHOTREXATE. [Suspect]
     Active Substance: METHOTREXATE
     Indication: PROPHYLAXIS
     Dosage: 800 MG/M2 22H ; ON DAY 1 OF COURSES...
     Route: 042
  10. DOXORUBICIN [Suspect]
     Active Substance: DOXORUBICIN
     Indication: NEOPLASM MALIGNANT
     Dosage: 50 MG/M2, QD; OVER 24 H ON DAY 4 ON COURSES...
     Route: 042
  11. LEUCOVORIN                         /00566701/ [Concomitant]
     Active Substance: LEUCOVORIN
     Dosage: 15 MILLIGRAM, Q6H EIGHT DOSES
     Route: 042
  12. OFATUMUMAB [Suspect]
     Active Substance: OFATUMUMAB
     Indication: NEOPLASM MALIGNANT
     Dosage: ON DAY 1 OF COURSE ONE
     Route: 042
  13. CYTARABINE. [Suspect]
     Active Substance: CYTARABINE
     Indication: PROPHYLAXIS
     Dosage: 100 MG, ON DAY 7 DURING FIRST FOUR COURSES..
     Route: 037
  14. DEXAMETHASONE. [Suspect]
     Active Substance: DEXAMETHASONE
     Indication: NEOPLASM MALIGNANT
     Dosage: 40 MG, QD, ON DAYS 1?4 AND 11?14 ON COURSES..
     Route: 065

REACTIONS (2)
  - Sepsis [Fatal]
  - Infection [Fatal]
